FAERS Safety Report 9187769 (Version 1)
Quarter: 2013Q1

REPORT INFORMATION
  Report Type: Spontaneous
  Country: US (occurrence: US)
  Receive Date: 20130325
  Receipt Date: 20130325
  Transmission Date: 20140127
  Serious: No
  Sender: FDA-Public Use
  Company Number: US-MYLANLABS-2012S1007638

PATIENT
  Age: 66 Year
  Sex: Female
  Weight: 74.84 kg

DRUGS (2)
  1. FENTANYL TRANSDERMAL SYSTEM [Suspect]
     Indication: BACK PAIN
     Dosage: CHANGES Q. 48 HOURS
     Route: 062
     Dates: start: 200702
  2. FENTANYL TRANSDERMAL SYSTEM [Suspect]
     Indication: BACK PAIN
     Route: 062
     Dates: start: 20120301, end: 20120303

REACTIONS (5)
  - Drug effect increased [Recovered/Resolved]
  - Hallucination [Recovered/Resolved]
  - Confusional state [Recovered/Resolved]
  - Heart rate increased [Recovered/Resolved]
  - Incorrect dose administered [Recovered/Resolved]
